FAERS Safety Report 7657352-9 (Version None)
Quarter: 2011Q3

REPORT INFORMATION
  Report Type: 
  Country: None (occurrence: None)
  Receive Date: 20110804
  Receipt Date: 20110729
  Transmission Date: 20111222
  Serious: Yes (Death, Other)
  Sender: FDA-Public Use
  Company Number: PHHY2011US68321

PATIENT
  Sex: Female
  Weight: 45 kg

DRUGS (11)
  1. METHYLPREDNISOLONE [Concomitant]
  2. CYMBALTA [Concomitant]
  3. CRESTOR [Concomitant]
  4. OXYBUTYNIN [Concomitant]
  5. PLAVIX [Concomitant]
  6. ACCUPRIL [Concomitant]
  7. RECLAST [Suspect]
     Indication: OSTEOPOROSIS
     Dosage: UNK
     Route: 042
     Dates: start: 20110518
  8. DITROPAN [Concomitant]
  9. PERCOCET [Concomitant]
  10. QUINAPRIL HCL [Concomitant]
  11. PREDNISOLONE [Concomitant]

REACTIONS (45)
  - HEPATORENAL SYNDROME [None]
  - CHOLELITHIASIS [None]
  - BUNDLE BRANCH BLOCK LEFT [None]
  - BLOOD BILIRUBIN ABNORMAL [None]
  - AMMONIA ABNORMAL [None]
  - LETHARGY [None]
  - VASCULAR CALCIFICATION [None]
  - DISORIENTATION [None]
  - RENAL IMPAIRMENT [None]
  - DYSSTASIA [None]
  - HEPATIC CANCER METASTATIC [None]
  - ABDOMINAL PAIN UPPER [None]
  - TENDERNESS [None]
  - OEDEMA PERIPHERAL [None]
  - HEPATIC NEOPLASM [None]
  - ENCEPHALOPATHY [None]
  - TACHYCARDIA [None]
  - PLATELET COUNT ABNORMAL [None]
  - WHITE BLOOD CELL COUNT ABNORMAL [None]
  - SINUS TACHYCARDIA [None]
  - HEPATIC MASS [None]
  - LIVER FUNCTION TEST ABNORMAL [None]
  - OSTEOPENIA [None]
  - MALAISE [None]
  - PAIN IN JAW [None]
  - TUMOUR MARKER INCREASED [None]
  - ANAEMIA [None]
  - PULMONARY ARTERIAL PRESSURE INCREASED [None]
  - ALANINE AMINOTRANSFERASE ABNORMAL [None]
  - BLOOD CREATININE ABNORMAL [None]
  - CONFUSIONAL STATE [None]
  - RENAL FAILURE ACUTE [None]
  - BLOOD ALKALINE PHOSPHATASE INCREASED [None]
  - SERUM FERRITIN ABNORMAL [None]
  - ASPARTATE AMINOTRANSFERASE ABNORMAL [None]
  - HAEMOGLOBIN DECREASED [None]
  - HEPATOMEGALY [None]
  - LEFT VENTRICULAR HYPERTROPHY [None]
  - CARDIAC MURMUR [None]
  - MENTAL STATUS CHANGES [None]
  - GAMMA-GLUTAMYLTRANSFERASE ABNORMAL [None]
  - BLOOD UREA ABNORMAL [None]
  - GAIT DISTURBANCE [None]
  - PYREXIA [None]
  - ASTHENIA [None]
